FAERS Safety Report 4573963-1 (Version None)
Quarter: 2005Q1

REPORT INFORMATION
  Report Type: 
  Country: None (occurrence: None)
  Receive Date: 20050204
  Receipt Date: 20050120
  Transmission Date: 20050727
  Serious: Yes (Hospitalization)
  Sender: FDA-Public Use
  Company Number: 8007267

PATIENT
  Age: 83 Year
  Sex: Female
  Weight: 63.63 kg

DRUGS (11)
  1. KEPPRA [Suspect]
     Indication: CONVULSION
     Dosage: 1000 MG 2/D PO
     Route: 048
     Dates: start: 20020101, end: 20040927
  2. KEPPRA [Suspect]
     Indication: CONVULSION
     Dosage: 500 MG 2/D PO
     Route: 048
     Dates: start: 20040928
  3. KEPPRA [Suspect]
     Indication: CONVULSION
     Dosage: 500 MG 4/D PO
     Route: 048
  4. DEPAKOTE [Suspect]
     Indication: CONVULSION
     Dosage: 500 MG 4/D PO
     Route: 048
     Dates: start: 20040401, end: 20040913
  5. DEPAKOTE [Suspect]
     Indication: CONVULSION
     Dosage: 1500 MG PO
     Route: 048
     Dates: start: 20040914, end: 20040920
  6. DEPAKOTE [Suspect]
     Indication: CONVULSION
     Dosage: 500 MG 2/D PO
     Route: 048
     Dates: start: 20040921
  7. ANTIBIOTIC THERAPY [Concomitant]
  8. THYROID REPLACEMENT [Concomitant]
  9. AMARYL [Concomitant]
  10. HEPARIN [Concomitant]
  11. CALCIUM SUPPLEMENT [Concomitant]

REACTIONS (27)
  - ANTICONVULSANT DRUG LEVEL INCREASED [None]
  - APHASIA [None]
  - BRAIN ABSCESS [None]
  - BRAIN MASS [None]
  - COGNITIVE DISORDER [None]
  - CONFUSIONAL STATE [None]
  - DEEP VEIN THROMBOSIS [None]
  - DEMENTIA ALZHEIMER'S TYPE [None]
  - DEPRESSION [None]
  - DYSGRAPHIA [None]
  - DYSKINESIA [None]
  - DYSPHAGIA [None]
  - FATIGUE [None]
  - GRAND MAL CONVULSION [None]
  - HYPOKINESIA [None]
  - IMMOBILE [None]
  - IRRITABILITY [None]
  - MEDICATION ERROR [None]
  - MEMORY IMPAIRMENT [None]
  - MENTAL IMPAIRMENT [None]
  - MOOD ALTERED [None]
  - MOVEMENT DISORDER [None]
  - PARKINSON'S DISEASE [None]
  - SHUNT INFECTION [None]
  - SOMNOLENCE [None]
  - SPEECH DISORDER [None]
  - TREMOR [None]
